FAERS Safety Report 7028907-X (Version None)
Quarter: 2010Q4

REPORT INFORMATION
  Report Type: 
  Country: None (occurrence: None)
  Receive Date: 20101005
  Receipt Date: 20100928
  Transmission Date: 20110411
  Serious: Yes (Death, Other)
  Sender: FDA-Public Use
  Company Number: US-PFIZER INC-2010086581

PATIENT
  Sex: Female

DRUGS (1)
  1. CHANTIX [Suspect]
     Indication: SMOKING CESSATION THERAPY
     Dosage: ONE TABLET TWICE DAILY
     Dates: start: 20071001

REACTIONS (3)
  - COMPLETED SUICIDE [None]
  - DEPRESSION [None]
  - PANIC ATTACK [None]
